FAERS Safety Report 20321187 (Version 1)
Quarter: 2022Q1

REPORT INFORMATION
  Report Type: Spontaneous
  Country: US (occurrence: US)
  Receive Date: 20220111
  Receipt Date: 20220111
  Transmission Date: 20220423
  Serious: Yes (Death, Hospitalization)
  Sender: FDA-Public Use
  Company Number: US-BAYER-2022A001877

PATIENT
  Age: 61 Year
  Sex: Female

DRUGS (12)
  1. ASPIRIN [Suspect]
     Active Substance: ASPIRIN
     Route: 048
  2. AMLODIPINE [Suspect]
     Active Substance: AMLODIPINE BESYLATE
  3. ATENOLOL [Suspect]
     Active Substance: ATENOLOL
  4. SERTRALINE [Suspect]
     Active Substance: SERTRALINE HYDROCHLORIDE
  5. CLONAZEPAM [Suspect]
     Active Substance: CLONAZEPAM
  6. CARIPRAZINE [Suspect]
     Active Substance: CARIPRAZINE
  7. VALPROIC ACID [Suspect]
     Active Substance: VALPROIC ACID
  8. ZIPRASIDONE [Suspect]
     Active Substance: ZIPRASIDONE
  9. BENZTROPINE [Suspect]
     Active Substance: BENZTROPINE
  10. BUSPIRONE [Suspect]
     Active Substance: BUSPIRONE HYDROCHLORIDE
  11. OMEPRAZOLE [Suspect]
     Active Substance: OMEPRAZOLE
  12. ATORVASTATIN [Suspect]
     Active Substance: ATORVASTATIN

REACTIONS (2)
  - Completed suicide [Fatal]
  - Toxicity to various agents [Fatal]
